FAERS Safety Report 19305395 (Version 2)
Quarter: 2021Q3

REPORT INFORMATION
  Report Type: Spontaneous
  Country: US (occurrence: US)
  Receive Date: 20210526
  Receipt Date: 20210916
  Transmission Date: 20211014
  Serious: Yes (Hospitalization, Other)
  Sender: FDA-Public Use
  Company Number: US-DRREDDYS-USA/USA/21/0135739

PATIENT
  Age: 20 Year
  Sex: Female

DRUGS (1)
  1. TESTOSTERONE INJECTABLE SUSPENSION [Suspect]
     Active Substance: TESTOSTERONE
     Indication: TRANSGENDER HORMONAL THERAPY

REACTIONS (4)
  - Condition aggravated [Unknown]
  - Homicidal ideation [Unknown]
  - Dissociative identity disorder [Unknown]
  - Suicidal ideation [Unknown]
